FAERS Safety Report 7454401-8 (Version None)
Quarter: 2011Q2

REPORT INFORMATION
  Report Type: 
  Country: None (occurrence: None)
  Receive Date: 20110503
  Receipt Date: 20110426
  Transmission Date: 20111010
  Serious: Yes (Death, Other)
  Sender: FDA-Public Use
  Company Number: JP-CELGENEUS-TAJPN-11-0001

PATIENT
  Sex: Female
  Weight: 47 kg

DRUGS (1)
  1. ABRAXANE [Suspect]
     Indication: BREAST CANCER METASTATIC
     Dosage: 260 MILLIGRAM
     Route: 050
     Dates: start: 20101207, end: 20101207

REACTIONS (3)
  - BREAST CANCER METASTATIC [None]
  - BLOOD UREA INCREASED [None]
  - HYPERKALAEMIA [None]
